FAERS Safety Report 7425862-5 (Version None)
Quarter: 2011Q2

REPORT INFORMATION
  Report Type: 
  Country: None (occurrence: None)
  Receive Date: 20110418
  Receipt Date: 20110418
  Transmission Date: 20111010
  Serious: Yes (Other)
  Sender: FDA-Public Use
  Company Number: None

PATIENT
  Age: 5 Year
  Sex: Female
  Weight: 21.5 kg

DRUGS (1)
  1. LEVETIRACETAM [Suspect]
     Indication: CONVULSION
     Dosage: 300MG TWICE DAILY PO
     Route: 048
     Dates: start: 20100321, end: 20110415

REACTIONS (2)
  - DRUG EFFECT DECREASED [None]
  - ANTICONVULSANT DRUG LEVEL ABNORMAL [None]
